FAERS Safety Report 17248854 (Version 10)
Quarter: 2023Q4

REPORT INFORMATION
  Report Type: Report from Study
  Country: CO (occurrence: CO)
  Receive Date: 20200108
  Receipt Date: 20231109
  Transmission Date: 20240110
  Serious: Yes (Hospitalization, Other)
  Sender: FDA-Public Use
  Company Number: CO-002147023-NVSC2019CO013487

PATIENT

DRUGS (12)
  1. RUXOLITINIB [Suspect]
     Active Substance: RUXOLITINIB
     Indication: Polycythaemia vera
     Dosage: 10 MG, BID (EVERY 12 HOURS)
     Route: 048
     Dates: start: 20170321
  2. RUXOLITINIB [Suspect]
     Active Substance: RUXOLITINIB
     Dosage: 30 MG, QD (2 OF 5 MG IN THE MORNING, 2 OF 5 MG IN THE AFTERNOON AND 2 OF 5 MG AT NIGHT)
     Route: 048
  3. RUXOLITINIB [Suspect]
     Active Substance: RUXOLITINIB
     Dosage: 45 MG, QD (3 TIMES A DAY/3 OF 5 MG IN THE MORNING, 3 OF 5 MG IN THE AFTERNOON AND 3 OF 5 MG AT NIGHT
     Route: 048
  4. RUXOLITINIB [Suspect]
     Active Substance: RUXOLITINIB
     Dosage: 10 MG, TID
     Route: 048
  5. RUXOLITINIB [Suspect]
     Active Substance: RUXOLITINIB
     Dosage: 10 MG, QD
     Route: 048
  6. RUXOLITINIB [Suspect]
     Active Substance: RUXOLITINIB
     Dosage: 20 MG, Q12H  (BOX OF 60 TABLETS)
     Route: 048
  7. RUXOLITINIB [Suspect]
     Active Substance: RUXOLITINIB
     Dosage: 15 MG (BOX OF 60 TABLETS) (FROM JUL)
     Route: 048
  8. RUXOLITINIB [Suspect]
     Active Substance: RUXOLITINIB
     Dosage: UNK
     Route: 048
  9. RUXOLITINIB [Suspect]
     Active Substance: RUXOLITINIB
     Dosage: 30 MG (IN THE DAY)
     Route: 048
  10. RUXOLITINIB [Suspect]
     Active Substance: RUXOLITINIB
     Dosage: 20 MG, BID
     Route: 048
  11. LOSARTAN POTASSIUM [Suspect]
     Active Substance: LOSARTAN POTASSIUM
     Indication: Hypertension
     Dosage: UNK
     Route: 065
  12. AMLODIPINE BESYLATE [Suspect]
     Active Substance: AMLODIPINE BESYLATE
     Indication: Hypertension
     Dosage: UNK
     Route: 065

REACTIONS (20)
  - Gait disturbance [Unknown]
  - Epistaxis [Recovered/Resolved]
  - Mouth haemorrhage [Unknown]
  - Epistaxis [Unknown]
  - Bone demineralisation [Unknown]
  - Insomnia [Unknown]
  - Haemorrhage [Unknown]
  - Laboratory test abnormal [Unknown]
  - Feeling abnormal [Unknown]
  - Haemoglobin increased [Unknown]
  - Hypoaesthesia [Unknown]
  - Laziness [Unknown]
  - Arthralgia [Unknown]
  - Fall [Unknown]
  - Malaise [Unknown]
  - Platelet count increased [Unknown]
  - Pain [Unknown]
  - Back pain [Unknown]
  - Peripheral swelling [Unknown]
  - Pain in extremity [Unknown]
